FAERS Safety Report 5078852-4 (Version None)
Quarter: 2006Q3

REPORT INFORMATION
  Report Type: 
  Country: None (occurrence: None)
  Receive Date: 20060809
  Receipt Date: 20060724
  Transmission Date: 20061208
  Serious: Yes (Death)
  Sender: FDA-Public Use
  Company Number: 007819

PATIENT
  Age: 21 Year
  Sex: Female
  Weight: 56.7 kg

DRUGS (9)
  1. PLAN B [Suspect]
     Dosage: 2 TABLET, SINGLE, ORAL
     Route: 048
     Dates: start: 20060327, end: 20060327
  2. TYLENOL COLD MEDICATION [Concomitant]
  3. AMPHETAMINE [Concomitant]
  4. VITAMINS [Concomitant]
  5. VALTREX [Concomitant]
  6. ORTHO TRI-CYCLEN LO [Concomitant]
  7. CIPRO [Concomitant]
  8. SULFAMETHOXAZOLE + TRIMETHOPRIM [Concomitant]
  9. ORAL CONTRACEPTIVE NOS (ORAL CONRACEPTIVE NOS) [Concomitant]

REACTIONS (12)
  - ABDOMINAL DISTENSION [None]
  - ARRHYTHMIA [None]
  - CHILLS [None]
  - DRUG USE FOR UNKNOWN INDICATION [None]
  - HEADACHE [None]
  - INFLAMMATION [None]
  - LOCAL SWELLING [None]
  - MENORRHAGIA [None]
  - PELVIC PAIN [None]
  - PYREXIA [None]
  - SELF-MEDICATION [None]
  - TOXICOLOGIC TEST ABNORMAL [None]
